FAERS Safety Report 7752179-1 (Version None)
Quarter: 2011Q3

REPORT INFORMATION
  Report Type: 
  Country: None (occurrence: None)
  Receive Date: 20110915
  Receipt Date: 20110912
  Transmission Date: 20111222
  Serious: Yes (Other)
  Sender: FDA-Public Use
  Company Number: US-PFIZER INC-2011214598

PATIENT
  Sex: Female
  Weight: 48.98 kg

DRUGS (1)
  1. ZOLOFT [Suspect]
     Indication: DEPRESSION
     Dosage: 25 MG, UNK
     Route: 048
     Dates: start: 20090901, end: 20091101

REACTIONS (11)
  - ANAPHYLACTIC REACTION [None]
  - NAUSEA [None]
  - ABNORMAL DREAMS [None]
  - INSOMNIA [None]
  - PAIN [None]
  - SNEEZING [None]
  - COUGH [None]
  - DRY MOUTH [None]
  - HALLUCINATION [None]
  - PRURITUS [None]
  - ALOPECIA [None]
